FAERS Safety Report 18167551 (Version 1)
Quarter: 2020Q3

REPORT INFORMATION
  Report Type: Spontaneous
  Country: IT (occurrence: IT)
  Receive Date: 20200818
  Receipt Date: 20200818
  Transmission Date: 20201103
  Serious: Yes (Other)
  Sender: FDA-Public Use
  Company Number: IT-MYLANLABS-2020M1071379

PATIENT
  Age: 64 Year
  Sex: Female

DRUGS (1)
  1. DYMISTA [Suspect]
     Active Substance: AZELASTINE HYDROCHLORIDE\FLUTICASONE PROPIONATE
     Indication: PRODUCT USED FOR UNKNOWN INDICATION
     Dosage: 1 DOSAGE FORM, TOTAL
     Dates: start: 20200726, end: 20200726

REACTIONS (3)
  - Product administration error [Recovering/Resolving]
  - Pruritus [Recovering/Resolving]
  - Wrong product administered [Unknown]

NARRATIVE: CASE EVENT DATE: 20200726
